FAERS Safety Report 21005427 (Version 2)
Quarter: 2022Q3

REPORT INFORMATION
  Report Type: Report from Study
  Country: US (occurrence: US)
  Receive Date: 20220624
  Receipt Date: 20220804
  Transmission Date: 20221026
  Serious: No
  Sender: FDA-Public Use
  Company Number: US-NOVARTISTESTPH-NVSC2022US144686

PATIENT
  Sex: Male

DRUGS (3)
  1. TABRECTA [Suspect]
     Active Substance: CAPMATINIB
     Indication: Product used for unknown indication
     Dosage: UNK
     Route: 048
  2. TABRECTA [Suspect]
     Active Substance: CAPMATINIB
     Dosage: 1 PILL, QD (DOSE REDUCED)
     Route: 065
  3. TABRECTA [Suspect]
     Active Substance: CAPMATINIB
     Dosage: 2 PILLS QD (DOSE INCREASED)
     Route: 065

REACTIONS (5)
  - Haemoptysis [Recovered/Resolved]
  - Wheezing [Recovered/Resolved]
  - Illness [Unknown]
  - Cough [Recovered/Resolved]
  - Nausea [Unknown]
